FAERS Safety Report 6060757-3 (Version None)
Quarter: 2009Q1

REPORT INFORMATION
  Report Type: 
  Country: None (occurrence: None)
  Receive Date: 20090202
  Receipt Date: 20090128
  Transmission Date: 20090719
  Serious: Yes (Death, Other)
  Sender: FDA-Public Use
  Company Number: PHHY2009JP02433

PATIENT
  Sex: Female

DRUGS (4)
  1. CYCLOSPORINE [Suspect]
     Indication: STEM CELL TRANSPLANT
  2. BUSULFAN [Concomitant]
     Indication: STEM CELL TRANSPLANT
     Dosage: 32 MG/KG/DAY
  3. FLUDARABINE [Concomitant]
     Indication: STEM CELL TRANSPLANT
     Dosage: 30 MG/M2
  4. IRRADIATION [Concomitant]
     Dosage: 4 GY

REACTIONS (3)
  - CONCOMITANT DISEASE PROGRESSION [None]
  - GRAFT VERSUS HOST DISEASE [None]
  - PNEUMONIA BACTERIAL [None]
